FAERS Safety Report 7639677-6 (Version None)
Quarter: 2011Q3

REPORT INFORMATION
  Report Type: 
  Country: None (occurrence: None)
  Receive Date: 20110727
  Receipt Date: 20110714
  Transmission Date: 20111222
  Serious: Yes (Hospitalization)
  Sender: FDA-Public Use
  Company Number: CH-ELI_LILLY_AND_COMPANY-CH201106008120

PATIENT
  Age: 64 Year
  Sex: Male
  Weight: 52.7 kg

DRUGS (6)
  1. FERRUM-HAUSMANN [Concomitant]
     Dosage: 1 DF, QD
     Dates: start: 20080630
  2. ZYPREXA [Suspect]
     Indication: SCHIZOPHRENIA, PARANOID TYPE
     Dosage: 15 MG, QD
     Route: 048
     Dates: start: 20080812
  3. FOLIC ACID [Concomitant]
     Dosage: 5 MG, QD
     Dates: start: 20101004
  4. LEVOTHYROXINE SODIUM [Concomitant]
     Dosage: 0.05 MG, QD
  5. PANTOPRAZOLE [Concomitant]
     Dosage: 80 MG, QD
     Dates: start: 20080630
  6. SUCRALFATE [Concomitant]
     Dosage: 4 G, QD
     Dates: start: 20110314

REACTIONS (2)
  - DYSPHAGIA [None]
  - PNEUMONIA ASPIRATION [None]
